FAERS Safety Report 21068879 (Version 1)
Quarter: 2022Q3

REPORT INFORMATION
  Report Type: Spontaneous
  Country: US (occurrence: None)
  Receive Date: 20220711
  Receipt Date: 20220711
  Transmission Date: 20221026
  Serious: Yes (Other)
  Sender: FDA-Public Use
  Company Number: None

PATIENT
  Age: 64 Year
  Sex: Female
  Weight: 64.41 kg

DRUGS (1)
  1. PAXLOVID [Suspect]
     Active Substance: NIRMATRELVIR\RITONAVIR
     Indication: COVID-19
     Dosage: FREQUENCY : TWICE A DAY;?
     Dates: start: 20220626, end: 20220702

REACTIONS (8)
  - Throat irritation [None]
  - COVID-19 [None]
  - Cough [None]
  - Pain [None]
  - Abdominal pain [None]
  - Diarrhoea [None]
  - Fatigue [None]
  - Rebound effect [None]

NARRATIVE: CASE EVENT DATE: 20220706
